FAERS Safety Report 10771569 (Version 1)
Quarter: 2015Q1

REPORT INFORMATION
  Report Type: Spontaneous
  Country: NL (occurrence: NL)
  Receive Date: 20150206
  Receipt Date: 20150206
  Transmission Date: 20150721
  Serious: Yes (Other)
  Sender: FDA-Public Use
  Company Number: NL-009507513-1502NLD002718

PATIENT
  Sex: Female

DRUGS (1)
  1. SYNAPAUSE-E3 [Suspect]
     Active Substance: ESTRADIOL
     Indication: PRODUCT USED FOR UNKNOWN INDICATION
     Dosage: 1 MG/G, QD
     Route: 065

REACTIONS (2)
  - Cystitis [Unknown]
  - Product quality issue [Unknown]
